FAERS Safety Report 4609730-X (Version None)
Quarter: 2005Q1

REPORT INFORMATION
  Report Type: 
  Country: None (occurrence: None)
  Receive Date: 20050314
  Receipt Date: 20040917
  Transmission Date: 20050727
  Serious: Yes (Congenital Anomaly)
  Sender: FDA-Public Use
  Company Number: 9073

PATIENT
  Sex: Female

DRUGS (6)
  1. ACYCLOVIR [Suspect]
     Indication: VARICELLA
     Dates: start: 20040117
  2. VALPROATE SODIUM [Concomitant]
  3. FOLIC ACID [Concomitant]
  4. ZOLMITRIPTAN [Concomitant]
  5. PHYTONADIONE [Concomitant]
  6. IMMUNE GLOBULIN INTRAVENOUS (HUMAN) [Concomitant]

REACTIONS (3)
  - APGAR SCORE LOW [None]
  - DRUG EXPOSURE DURING PREGNANCY [None]
  - PILONIDAL CYST CONGENITAL [None]
